FAERS Safety Report 5007203-6 (Version None)
Quarter: 2006Q1

REPORT INFORMATION
  Report Type: 
  Country: None (occurrence: None)
  Receive Date: 20060320
  Receipt Date: 20050429
  Transmission Date: 20060701
  Serious: Yes (Hospitalization)
  Sender: FDA-Public Use
  Company Number: 2005-04-2330

PATIENT
  Age: 46 Year
  Sex: Female
  Weight: 91.6266 kg

DRUGS (5)
  1. PEG-INTRON [Suspect]
     Indication: HEPATITIS C
     Dosage: 120 MCG QW
     Dates: start: 20040101, end: 20050401
  2. RIBAVIRIN [Suspect]
     Indication: HEPATITIS C
     Dosage: 600 MG BID ORAL
     Route: 048
  3. PROCRIT [Concomitant]
  4. LEXAPRO [Concomitant]
  5. NAPROSYN [Concomitant]

REACTIONS (2)
  - PANCREATITIS [None]
  - THROMBOCYTOPENIA [None]
